FAERS Safety Report 7732651-0 (Version None)
Quarter: 2011Q3

REPORT INFORMATION
  Report Type: 
  Country: None (occurrence: None)
  Receive Date: 20110907
  Receipt Date: 20110826
  Transmission Date: 20111222
  Serious: Yes (Hospitalization)
  Sender: FDA-Public Use
  Company Number: US-BIOGENIDEC-2011BI006789

PATIENT
  Age: 38 Year
  Sex: Female

DRUGS (2)
  1. TYSABRI [Suspect]
     Indication: MULTIPLE SCLEROSIS
     Route: 042
     Dates: start: 20100929, end: 20110606
  2. TYSABRI [Suspect]
     Route: 042
     Dates: start: 20110701

REACTIONS (6)
  - RENAL FAILURE ACUTE [None]
  - IMPAIRED GASTRIC EMPTYING [None]
  - HEADACHE [None]
  - FAILURE TO THRIVE [None]
  - ASTHENIA [None]
  - MUSCULAR WEAKNESS [None]
